FAERS Safety Report 5782604-7 (Version None)
Quarter: 2008Q2

REPORT INFORMATION
  Report Type: 
  Country: None (occurrence: None)
  Receive Date: 20080624
  Receipt Date: 20080613
  Transmission Date: 20081010
  Serious: Yes (Other)
  Sender: FDA-Public Use
  Company Number: FR-PFIZER INC-2008050348

PATIENT
  Age: 79 Year
  Sex: Female

DRUGS (3)
  1. ATORVASTATIN CALCIUM [Suspect]
  2. ARICEPT [Suspect]
     Indication: DEMENTIA ALZHEIMER'S TYPE
  3. KETOCONAZOLE [Concomitant]

REACTIONS (2)
  - ANOREXIA [None]
  - CACHEXIA [None]
